FAERS Safety Report 8254959-5 (Version None)
Quarter: 2012Q2

REPORT INFORMATION
  Report Type: 
  Country: None (occurrence: None)
  Receive Date: 20120403
  Receipt Date: 20120328
  Transmission Date: 20120825
  Serious: No
  Sender: FDA-Public Use
  Company Number: US-PFIZER INC-2012033745

PATIENT
  Sex: Female
  Weight: 77.098 kg

DRUGS (11)
  1. PROTONIX [Concomitant]
     Indication: GASTRIC DISORDER
  2. FLEXERIL [Concomitant]
     Dosage: UNK
  3. LYRICA [Suspect]
     Dosage: 100 MG, 3X/DAY
     Dates: start: 20090101
  4. CARVEDILOL [Concomitant]
     Dosage: UNK, 2X/DAY
  5. XYZAL [Concomitant]
     Indication: HYPERSENSITIVITY
     Dosage: 5 MG, DAILY
  6. LYRICA [Suspect]
     Indication: FIBROMYALGIA
     Dosage: 150 MG, 2X/DAY
  7. PROTONIX [Concomitant]
     Indication: GASTROOESOPHAGEAL REFLUX DISEASE
     Dosage: 40 MG, DAILY
  8. ESTRATEST [Concomitant]
     Indication: HORMONE REPLACEMENT THERAPY
     Dosage: UNK, DAILY
  9. THYROID TAB [Concomitant]
     Indication: HYPERTHYROIDISM
     Dosage: 60 MG, DAILY
  10. EFFEXOR XR [Concomitant]
     Dosage: 150 MG, 2X/DAY
  11. VITAMIN D [Concomitant]
     Dosage: UNK, 2X/WEEK

REACTIONS (3)
  - NAUSEA [None]
  - GALLBLADDER DISORDER [None]
  - VOMITING [None]
